FAERS Safety Report 6505151-3 (Version None)
Quarter: 2009Q4

REPORT INFORMATION
  Report Type: 
  Country: None (occurrence: None)
  Receive Date: 20091218
  Receipt Date: 20091209
  Transmission Date: 20100525
  Serious: Yes (Death, Other)
  Sender: FDA-Public Use
  Company Number: PHHY2009JP54977

PATIENT
  Sex: Female
  Weight: 45 kg

DRUGS (2)
  1. FEMARA [Suspect]
     Indication: BREAST CANCER
  2. ZOMETA [Suspect]
     Indication: METASTASES TO BONE
     Dosage: 4 MG PER ADMINISTRATION
     Route: 042
     Dates: start: 20070601, end: 20090902

REACTIONS (2)
  - ABSCESS ORAL [None]
  - BREAST CANCER RECURRENT [None]
